FAERS Safety Report 22022040 (Version 2)
Quarter: 2023Q1

REPORT INFORMATION
  Report Type: Spontaneous
  Country: CZ (occurrence: CZ)
  Receive Date: 20230222
  Receipt Date: 20230307
  Transmission Date: 20230417
  Serious: Yes (Other)
  Sender: FDA-Public Use
  Company Number: CZ-MYLANLABS-2023M1011264

PATIENT
  Age: 24 Year
  Sex: Male

DRUGS (1)
  1. CYCLOSPORINE [Suspect]
     Active Substance: CYCLOSPORINE
     Indication: Dermatitis atopic
     Dosage: UNK
     Route: 065

REACTIONS (4)
  - Superinfection viral [Recovered/Resolved]
  - Herpes virus infection [Recovered/Resolved]
  - Therapeutic product effect incomplete [Recovered/Resolved]
  - Therapy partial responder [Unknown]
